FAERS Safety Report 7891463-8 (Version None)
Quarter: 2011Q4

REPORT INFORMATION
  Report Type: 
  Country: None (occurrence: None)
  Receive Date: 20111103
  Receipt Date: 20110803
  Transmission Date: 20120403
  Serious: Yes (Other)
  Sender: FDA-Public Use
  Company Number: US-AMGEN-USASP2011039384

PATIENT
  Sex: Male

DRUGS (2)
  1. ENBREL [Suspect]
     Indication: GOUT
     Dosage: UNK
  2. PREDNISONE [Concomitant]
     Dosage: UNK

REACTIONS (3)
  - MALIGNANT MELANOMA [None]
  - IMPAIRED HEALING [None]
  - POST PROCEDURAL INFECTION [None]
